FAERS Safety Report 15889696 (Version 5)
Quarter: 2019Q1

REPORT INFORMATION
  Report Type: Spontaneous
  Country: US (occurrence: US)
  Receive Date: 20190130
  Receipt Date: 20190312
  Transmission Date: 20190417
  Serious: No
  Sender: FDA-Public Use
  Company Number: US-ALKERMES INC.-ALK-2019-000368

PATIENT
  Age: 34 Year
  Sex: Male
  Weight: 67.57 kg

DRUGS (1)
  1. VIVITROL [Suspect]
     Active Substance: NALTREXONE
     Indication: ALCOHOLISM
     Dosage: 380 MG, QMO
     Route: 030
     Dates: start: 20181025, end: 20181226

REACTIONS (6)
  - Pain in extremity [Recovering/Resolving]
  - Injection site pain [Recovering/Resolving]
  - Needle issue [Recovered/Resolved]
  - Product dose omission [Recovered/Resolved]
  - Injection site reaction [Recovering/Resolving]
  - Injection site swelling [Recovering/Resolving]

NARRATIVE: CASE EVENT DATE: 20181025
